FAERS Safety Report 8266430-5 (Version None)
Quarter: 2012Q2

REPORT INFORMATION
  Report Type: 
  Country: None (occurrence: None)
  Receive Date: 20120406
  Receipt Date: 20120402
  Transmission Date: 20120825
  Serious: Yes (Life-Threatening)
  Sender: FDA-Public Use
  Company Number: US-ASTRAZENECA-2012SE21757

PATIENT
  Age: 10 Year
  Sex: Male

DRUGS (3)
  1. PRILOSEC [Suspect]
     Indication: GASTROOESOPHAGEAL REFLUX DISEASE
     Route: 048
  2. PRILOSEC [Suspect]
     Indication: VOMITING
     Route: 048
  3. FLONASE [Concomitant]
     Indication: DYSPNOEA
     Route: 055

REACTIONS (3)
  - DYSPNOEA [None]
  - WHEEZING [None]
  - ASTHMA [None]
